FAERS Safety Report 4653252-7 (Version None)
Quarter: 2005Q2

REPORT INFORMATION
  Report Type: 
  Country: None (occurrence: None)
  Receive Date: 20050503
  Receipt Date: 20050309
  Transmission Date: 20051028
  Serious: Yes (Hospitalization)
  Sender: FDA-Public Use
  Company Number: A02200500659

PATIENT
  Age: 66 Year
  Sex: Male

DRUGS (6)
  1. XATRAL - (ALFUZOSIN) - TABLET PR - 10 MG [Suspect]
     Indication: PROSTATIC ADENOMA
     Dosage: 10 MG OD ORAL
     Route: 048
  2. TACROLIMUS - TABLET - 20 MG [Suspect]
     Indication: LIVER TRANSPLANT
     Dosage: 20 MG BID ORAL
     Route: 048
  3. AMLOR (AMLODIPINE BESILATE) [Concomitant]
  4. PREDNISONE TAB [Concomitant]
  5. CELLCEPT [Concomitant]
  6. MIXTARD (HUMAN INSULIN) [Concomitant]

REACTIONS (2)
  - DRUG INTERACTION [None]
  - DRUG LEVEL BELOW THERAPEUTIC [None]
